FAERS Safety Report 16465380 (Version 7)
Quarter: 2022Q3

REPORT INFORMATION
  Report Type: Spontaneous
  Country: US (occurrence: None)
  Receive Date: 20190621
  Receipt Date: 20220817
  Transmission Date: 20221026
  Serious: Yes (Other)
  Sender: FDA-Public Use
  Company Number: 2018SF65231

PATIENT
  Age: 61 Year
  Sex: Female

DRUGS (72)
  1. PRILOSEC [Suspect]
     Active Substance: OMEPRAZOLE MAGNESIUM
     Indication: Gastrooesophageal reflux disease
     Dosage: FOR VARIOUS DATES AND YEARS
     Route: 048
  2. PRILOSEC [Suspect]
     Active Substance: OMEPRAZOLE MAGNESIUM
     Indication: Gastrooesophageal reflux disease
     Route: 048
  3. PRILOSEC [Suspect]
     Active Substance: OMEPRAZOLE MAGNESIUM
     Indication: Gastrooesophageal reflux disease
     Dosage: GENERIC
     Route: 065
  4. PRILOSEC [Suspect]
     Active Substance: OMEPRAZOLE MAGNESIUM
     Indication: Gastrooesophageal reflux disease
     Route: 048
     Dates: start: 2008
  5. PRILOSEC [Suspect]
     Active Substance: OMEPRAZOLE MAGNESIUM
     Indication: Gastrooesophageal reflux disease
     Route: 048
     Dates: start: 20110216
  6. PREVACID [Suspect]
     Active Substance: LANSOPRAZOLE
     Indication: Gastrooesophageal reflux disease
     Dosage: FOR VARIOUS DATES AND YEARS
     Route: 065
  7. PREVACID [Suspect]
     Active Substance: LANSOPRAZOLE
     Indication: Gastrooesophageal reflux disease
     Route: 065
  8. PREVACID [Suspect]
     Active Substance: LANSOPRAZOLE
     Indication: Gastrooesophageal reflux disease
     Dosage: GENERIC
     Route: 065
  9. PREVACID [Suspect]
     Active Substance: LANSOPRAZOLE
     Indication: Gastrooesophageal reflux disease
     Route: 065
     Dates: start: 2008, end: 2016
  10. PREVACID [Suspect]
     Active Substance: LANSOPRAZOLE
     Indication: Gastrooesophageal reflux disease
     Route: 065
     Dates: start: 2016
  11. PREVACID [Suspect]
     Active Substance: LANSOPRAZOLE
     Indication: Gastrooesophageal reflux disease
     Route: 065
     Dates: start: 2008, end: 2016
  12. PREVACID [Suspect]
     Active Substance: LANSOPRAZOLE
     Indication: Gastrooesophageal reflux disease
     Route: 065
     Dates: start: 2016
  13. PREVACID [Suspect]
     Active Substance: LANSOPRAZOLE
     Indication: Gastrooesophageal reflux disease
     Route: 065
     Dates: start: 20110216
  14. PANTOPRAZOLE [Suspect]
     Active Substance: PANTOPRAZOLE
     Indication: Gastrooesophageal reflux disease
     Dosage: GENERIC
     Route: 065
     Dates: start: 20110406
  15. PANTOPRAZOLE [Suspect]
     Active Substance: PANTOPRAZOLE
     Indication: Gastrooesophageal reflux disease
     Dosage: GENERIC
     Route: 065
     Dates: start: 20110520
  16. PANTOPRAZOLE [Suspect]
     Active Substance: PANTOPRAZOLE
     Indication: Gastrooesophageal reflux disease
     Dosage: GENERIC
     Route: 065
     Dates: start: 20110630
  17. PANTOPRAZOLE [Suspect]
     Active Substance: PANTOPRAZOLE
     Indication: Gastrooesophageal reflux disease
     Dosage: GENERIC
     Route: 065
     Dates: start: 20110406, end: 201106
  18. PANTOPRAZOLE [Suspect]
     Active Substance: PANTOPRAZOLE
     Indication: Gastrooesophageal reflux disease
     Route: 065
     Dates: start: 20190707
  19. LOSARTAN [Concomitant]
     Active Substance: LOSARTAN
  20. NORCO [Concomitant]
     Active Substance: ACETAMINOPHEN\HYDROCODONE BITARTRATE
  21. FOLIC ACID [Concomitant]
     Active Substance: FOLIC ACID
  22. NORVASC [Concomitant]
     Active Substance: AMLODIPINE BESYLATE
  23. ROCALTROL [Concomitant]
     Active Substance: CALCITRIOL
  24. LIOTHYRONINE SODIUM [Concomitant]
     Active Substance: LIOTHYRONINE SODIUM
  25. ASPIRIN [Concomitant]
     Active Substance: ASPIRIN
     Indication: Anticoagulant therapy
     Dosage: TAKEN FOR 5 MONTHS
  26. COREG [Concomitant]
     Active Substance: CARVEDILOL
  27. CRESTOR [Concomitant]
     Active Substance: ROSUVASTATIN CALCIUM
     Indication: Hypertension
     Dates: start: 2014, end: 2016
  28. CRESTOR [Concomitant]
     Active Substance: ROSUVASTATIN CALCIUM
     Indication: Hypertension
     Route: 048
  29. EFFEXOR [Concomitant]
     Active Substance: VENLAFAXINE HYDROCHLORIDE
  30. VITAMIN D [Concomitant]
     Active Substance: VITAMIN D NOS
     Indication: Calcium deficiency
     Dates: start: 2013
  31. GLIMEPIRIDE [Concomitant]
     Active Substance: GLIMEPIRIDE
  32. ALLOPURINOL [Concomitant]
     Active Substance: ALLOPURINOL
  33. TRICOR [Concomitant]
     Active Substance: FENOFIBRATE
  34. PLAVIX [Concomitant]
     Active Substance: CLOPIDOGREL BISULFATE
     Indication: Cardiac disorder
     Dates: start: 20110406, end: 2019
  35. ENTOCORT [Concomitant]
     Active Substance: BUDESONIDE
  36. REGLAN [Concomitant]
     Active Substance: METOCLOPRAMIDE HYDROCHLORIDE
  37. LOMOTIL [Concomitant]
     Active Substance: ATROPINE SULFATE\DIPHENOXYLATE HYDROCHLORIDE
  38. MELOXICAM [Concomitant]
     Active Substance: MELOXICAM
     Indication: Arthralgia
     Dates: start: 20120912, end: 20141116
  39. AZITHROMYCIN [Concomitant]
     Active Substance: AZITHROMYCIN
     Indication: Infection
     Dates: start: 20100322, end: 20120622
  40. ASACOL [Concomitant]
     Active Substance: MESALAMINE
     Indication: Antiinflammatory therapy
     Dates: start: 20110414
  41. FUROSEMIDE [Concomitant]
     Active Substance: FUROSEMIDE
     Indication: Fluid retention
     Dates: start: 20111006, end: 2019
  42. CELEBREX [Concomitant]
     Active Substance: CELECOXIB
     Indication: Pain
     Dates: start: 2008, end: 20111213
  43. VOLTAREN [Concomitant]
     Active Substance: DICLOFENAC SODIUM
     Indication: Arthralgia
     Dates: start: 20111228
  44. AVELOX [Concomitant]
     Active Substance: MOXIFLOXACIN HYDROCHLORIDE
     Indication: Infection
     Dates: start: 20120312
  45. TYLENOL [Concomitant]
     Active Substance: ACETAMINOPHEN
     Indication: Headache
  46. IBUPROFEN [Concomitant]
     Active Substance: IBUPROFEN
     Indication: Pain
     Dates: start: 20071010
  47. FAMOTIDINE [Concomitant]
     Active Substance: FAMOTIDINE
     Dates: start: 2008
  48. SINGULAIR [Concomitant]
     Active Substance: MONTELUKAST SODIUM
     Dosage: IN THE EVENING
     Route: 048
  49. TRESIBA [Concomitant]
     Active Substance: INSULIN DEGLUDEC
     Dosage: INSULIN PEN INJECTED AS PER INSULIN PROTOCOL
     Route: 058
  50. XANAX [Concomitant]
     Active Substance: ALPRAZOLAM
     Route: 048
  51. ZOSTAVAX [Concomitant]
     Active Substance: VARICELLA-ZOSTER VIRUS STRAIN OKA/MERCK LIVE ANTIGEN
     Route: 048
  52. CYANOCOBALAMIN [Concomitant]
     Active Substance: CYANOCOBALAMIN
     Route: 048
  53. AUGMENTIN [Concomitant]
     Active Substance: AMOXICILLIN\CLAVULANATE POTASSIUM
  54. HUMULIN NOS [Concomitant]
     Active Substance: INSULIN HUMAN
  55. FENOFIBRIC ACID [Concomitant]
     Active Substance: FENOFIBRIC ACID
  56. TRILLPIX [Concomitant]
  57. RENAL VITAMIN [Concomitant]
     Route: 048
     Dates: start: 20200424
  58. ISOSORBIDE MONONITRATE [Concomitant]
     Active Substance: ISOSORBIDE MONONITRATE
  59. VITAMIN C [Concomitant]
     Active Substance: ASCORBIC ACID
  60. GLUCOPHAGE [Concomitant]
     Active Substance: METFORMIN HYDROCHLORIDE
  61. AMARYL [Concomitant]
     Active Substance: GLIMEPIRIDE
  62. ROBITUSSIN (GUAIFENESIN) [Concomitant]
     Active Substance: GUAIFENESIN
  63. EXCEDRIN [Concomitant]
     Active Substance: ACETAMINOPHEN\ASPIRIN\CAFFEINE
  64. GLUCAGON [Concomitant]
     Active Substance: GLUCAGON
  65. CLARITIN [Concomitant]
     Active Substance: LORATADINE
  66. TRILIPIX [Concomitant]
     Active Substance: FENOFIBRIC ACID
  67. LEVEMIR [Concomitant]
     Active Substance: INSULIN DETEMIR
  68. DOCUSATE [Concomitant]
     Active Substance: DOCUSATE
  69. LEVOTHYROXINE [Concomitant]
     Active Substance: LEVOTHYROXINE
  70. MELATONIN [Concomitant]
     Active Substance: MELATONIN
  71. MORPHINE [Concomitant]
     Active Substance: MORPHINE
  72. ONDANSETRON [Concomitant]
     Active Substance: ONDANSETRON

REACTIONS (7)
  - Acute kidney injury [Unknown]
  - Chronic kidney disease [Not Recovered/Not Resolved]
  - End stage renal disease [Not Recovered/Not Resolved]
  - Hyperparathyroidism secondary [Unknown]
  - Nephrogenic anaemia [Unknown]
  - Renal failure [Unknown]
  - Rebound acid hypersecretion [Unknown]

NARRATIVE: CASE EVENT DATE: 20120101
